FAERS Safety Report 4423342-2 (Version None)
Quarter: 2004Q3

REPORT INFORMATION
  Report Type: 
  Country: None (occurrence: None)
  Receive Date: 20040806
  Receipt Date: 20040730
  Transmission Date: 20050211
  Serious: Yes (Hospitalization)
  Sender: FDA-Public Use
  Company Number: 002228

PATIENT
  Age: 69 Year
  Sex: Female
  Weight: 72.6 kg

DRUGS (3)
  1. TRIAMTERENE + HYDROCHLOROTHIAZIDE (TRIAMTERENE, HYDROCHLOROTHIAZIDE) T [Suspect]
     Indication: HYPERTENSION
     Dosage: 0.50 TABLET, QD, ORAL
     Route: 048
     Dates: start: 20040702, end: 20040723
  2. ASPIRIN [Suspect]
  3. LISINOPRIL [Concomitant]

REACTIONS (7)
  - ASTHENIA [None]
  - BLOOD POTASSIUM DECREASED [None]
  - BLOOD SODIUM DECREASED [None]
  - DYSARTHRIA [None]
  - HYPERHIDROSIS [None]
  - MEMORY IMPAIRMENT [None]
  - NAUSEA [None]
